FAERS Safety Report 19698848 (Version 1)
Quarter: 2021Q3

REPORT INFORMATION
  Report Type: Spontaneous
  Country: CN (occurrence: CN)
  Receive Date: 20210813
  Receipt Date: 20210813
  Transmission Date: 20211014
  Serious: Yes (Other)
  Sender: FDA-Public Use
  Company Number: CN-AMNEAL PHARMACEUTICALS-2021-AMRX-03286

PATIENT
  Age: 48 Year
  Sex: Male

DRUGS (2)
  1. METHYLPREDNISOLONE SODIUM SUCCINATE. [Suspect]
     Active Substance: METHYLPREDNISOLONE SODIUM SUCCINATE
     Indication: ASTROCYTOMA, LOW GRADE
     Dosage: UNK, HIGH DOSE
     Route: 042
  2. IMMUNOGLOBULINS NOS [Suspect]
     Active Substance: IMMUNE GLOBULIN NOS
     Indication: ASTROCYTOMA, LOW GRADE
     Dosage: UNK
     Route: 042

REACTIONS (2)
  - Condition aggravated [Recovering/Resolving]
  - Astrocytoma, low grade [Recovering/Resolving]
